FAERS Safety Report 8796387 (Version 1)
Quarter: 2012Q4

REPORT INFORMATION
  Report Type: 
  Country: IT (occurrence: IT)
  Receive Date: 20120919
  Receipt Date: 20120919
  Transmission Date: 20130627
  Serious: Yes (Hospitalization)
  Sender: FDA-Public Use
  Company Number: IT-ASTRAZENECA-2012SE70925

PATIENT
  Age: 64 Year
  Sex: Female

DRUGS (2)
  1. BRILIQUE [Suspect]
     Indication: ACUTE CORONARY SYNDROME
     Route: 048
     Dates: start: 201207
  2. CLOPIDOGREL [Concomitant]

REACTIONS (3)
  - Acute coronary syndrome [Unknown]
  - Device occlusion [Unknown]
  - Drug ineffective [Unknown]
